FAERS Safety Report 5507543-8 (Version None)
Quarter: 2007Q4

REPORT INFORMATION
  Report Type: 
  Country: None (occurrence: None)
  Receive Date: 20071105
  Receipt Date: 20071105
  Transmission Date: 20080405
  Serious: Yes (Other)
  Sender: FDA-Public Use
  Company Number: None

PATIENT
  Age: 49 Year
  Sex: Female
  Weight: 56.6996 kg

DRUGS (1)
  1. VAGIFEM [Suspect]
     Dosage: VAG
     Route: 067
     Dates: start: 20070520, end: 20070930

REACTIONS (2)
  - CERVICAL DYSPLASIA [None]
  - DISEASE PROGRESSION [None]
